FAERS Safety Report 21242211 (Version 1)
Quarter: 2022Q3

REPORT INFORMATION
  Report Type: Spontaneous
  Country: US (occurrence: US)
  Receive Date: 20220823
  Receipt Date: 20220823
  Transmission Date: 20221026
  Serious: No
  Sender: FDA-Public Use
  Company Number: ALC2021US005793

PATIENT
  Sex: Female

DRUGS (35)
  1. ZADITOR [Suspect]
     Active Substance: KETOTIFEN FUMARATE
     Indication: Product used for unknown indication
     Dosage: INSTILL 1DROP INTO AFFECTED EYE AS NEEDED
     Route: 047
  2. ALBUTEROL SULFATE [Suspect]
     Active Substance: ALBUTEROL SULFATE
     Indication: Wheezing
     Dosage: 90 MCG/ACTUATION AEROSL INHALER, INHALE 1-2 PUFFS EVERY 6 HOURS(1 EACH)
     Route: 055
  3. ALBUTEROL SULFATE [Suspect]
     Active Substance: ALBUTEROL SULFATE
     Indication: Dyspnoea
  4. ALENDRONATE [Suspect]
     Active Substance: ALENDRONATE SODIUM
     Indication: Product used for unknown indication
     Dosage: 1 TABLET BY MOUTH EVERY 7 DAYS , TAKEN IN AM WITH GLASS OF WATER ON EMPTY STOMACH(12 TABLET)
     Route: 048
  5. ASCORBIC ACID [Suspect]
     Active Substance: ASCORBIC ACID
     Indication: Product used for unknown indication
     Route: 048
  6. BACLOFEN [Suspect]
     Active Substance: BACLOFEN
     Indication: Product used for unknown indication
     Dosage: 2 TABLET , TID(540 TABLET)
     Route: 065
  7. BUTALBITAL, ASPIRIN, AND CAFFEINE [Suspect]
     Active Substance: ASPIRIN\BUTALBITAL\CAFFEINE
     Indication: Headache
     Dosage: 50-325-4 MG, TAKE 1 CAPSULE BY MOUTH EVERY 6 HOURS AS NEEDED(180 CAPSULE)
     Route: 048
  8. CETIRIZINE [Suspect]
     Active Substance: CETIRIZINE HYDROCHLORIDE
     Indication: Product used for unknown indication
     Dosage: 10 MG
     Route: 048
  9. CLINDAMYCIN [Suspect]
     Active Substance: CLINDAMYCIN
     Indication: Product used for unknown indication
     Dosage: 4 CAPSULE BY MOUTH ONE HOUR PRIOR TO DENTAL APPOINTMENT
     Route: 065
  10. CLONAZEPAM [Suspect]
     Active Substance: CLONAZEPAM
     Indication: Product used for unknown indication
     Dosage: TAKE HALF TABLET IN THE MORNING AND ONE AT HS(135 TABLET)
     Route: 065
  11. COPAXONE [Suspect]
     Active Substance: GLATIRAMER ACETATE
     Indication: Product used for unknown indication
     Dosage: INJECT 40 MG UNDER SKIN 3 TIMES AWEEK (36 ML)
     Route: 065
  12. CRANBERRY [Suspect]
     Active Substance: CRANBERRY
     Indication: Product used for unknown indication
     Dosage: I CAPSULE BY MOUTH TID
     Route: 048
  13. DALFAMPRIDINE [Suspect]
     Active Substance: DALFAMPRIDINE
     Indication: Product used for unknown indication
     Dosage: 1 TABLET 10 MG TOTAL, BY MOUTH EVERY 12 HOURS
     Route: 048
  14. VOLTAREN [Suspect]
     Active Substance: DICLOFENAC SODIUM
     Indication: Arthralgia
     Dosage: APPLY 1 APPLICATION TOPICALLT TID AS NEEDED
     Route: 061
  15. DULOXETINE [Suspect]
     Active Substance: DULOXETINE
     Indication: Product used for unknown indication
     Dosage: TAKE 1 CAPSULE (30 MG TOTAL) BY MOUTH DAILY
     Route: 048
  16. EPINEPHRINE [Suspect]
     Active Substance: EPINEPHRINE
     Indication: Anaphylactic reaction
     Dosage: 0.3 ML(O.3 MG TOTAL), THIGH ROUTE AS NEEDED
     Route: 030
  17. FAMOTIDINE [Suspect]
     Active Substance: FAMOTIDINE
     Indication: Product used for unknown indication
     Dosage: 1 TABLET(40 MG 90 TABLET TOTAL) BY MOUTH AT BEDTIME
     Route: 048
  18. FAMOTIDINE [Suspect]
     Active Substance: FAMOTIDINE
     Dosage: 20 MG, BED TIME
     Route: 048
  19. CHONDROITIN SULFATE A\GLUCOSAMINE [Suspect]
     Active Substance: CHONDROITIN SULFATE A\GLUCOSAMINE
     Indication: Product used for unknown indication
     Dosage: 1 TABLET BY MOUTH MORNING + EVENING
     Route: 048
  20. LEVOTHYROXINE [Suspect]
     Active Substance: LEVOTHYROXINE
     Indication: Product used for unknown indication
     Dosage: 1 TABLET BY MOUTH EVERYDAY IN THE MORNING (75 MCG)
     Route: 048
  21. LIDOCAINE [Suspect]
     Active Substance: LIDOCAINE
     Indication: Product used for unknown indication
     Dosage: UNK UNK, BID, AS NEEDED PATCH
     Route: 065
  22. MAGNESIUM OXIDE [Suspect]
     Active Substance: MAGNESIUM OXIDE
     Indication: Product used for unknown indication
     Dosage: 400 MG, QD
     Route: 048
  23. MINOXIDIL [Suspect]
     Active Substance: MINOXIDIL
     Indication: Product used for unknown indication
     Dosage: UNK UNK, BID(APPLY TOPICALLY EVERY MORNING + EVEING )
     Route: 061
  24. MODAFINIL [Suspect]
     Active Substance: MODAFINIL
     Indication: Product used for unknown indication
     Dosage: 200 MG, BID
     Route: 048
  25. OMEGA-3-ACID ETHYL ESTER [Suspect]
     Active Substance: OMEGA-3-ACID ETHYL ESTERS
     Indication: Product used for unknown indication
     Dosage: TAKE 2 CAPSULE ( 2 G TOTAL) BY MOUTH EVERY MORNING AND EVENING
     Route: 048
  26. OMEPRAZOLE [Suspect]
     Active Substance: OMEPRAZOLE
     Indication: Product used for unknown indication
     Dosage: 20 MG, QD
     Route: 048
  27. OXYBUTYNIN [Suspect]
     Active Substance: OXYBUTYNIN
     Indication: Bladder spasm
     Dosage: TAKE 0.5-1 TABLET(2.5-5 MG TOTAL) BY MOUTH 3 TIMES A DAY
     Route: 048
  28. REFRESH OPTIVE [Suspect]
     Active Substance: CARBOXYMETHYLCELLULOSE SODIUM\GLYCERIN
     Indication: Product used for unknown indication
     Dosage: INSTILL 1 OR 2 DROPS IN THE AFFECTED EYE AS NEEDED
     Route: 047
  29. ROSUVASTATIN [Suspect]
     Active Substance: ROSUVASTATIN
     Indication: Product used for unknown indication
     Dosage: TAKE 1 TABLET BY MOUTH EVERYDAY AT BED TIME
     Route: 048
  30. ZOLOFT [Suspect]
     Active Substance: SERTRALINE HYDROCHLORIDE
     Indication: Product used for unknown indication
     Dosage: TAKE 2 TABLET ( 200 MG TOTAL) BY MOUTH DAILY (PATIENT TAKING DIFFERENTLY : TAKE 100 MG BY MOUTH DAIL
     Route: 048
  31. CALCIUM\VITAMIN D [Suspect]
     Active Substance: CALCIUM\VITAMIN D
     Indication: Product used for unknown indication
     Dosage: 630 MG AND 500 UNITS , 2 TIMES A DAY
     Route: 065
  32. COENZYME Q10 [Suspect]
     Active Substance: DIETARY SUPPLEMENT\UBIDECARENONE
     Indication: Product used for unknown indication
     Dosage: PATIENT TAKING DIFFRENTLY : TAKE 500 EACH BY MOUTH DAILY
     Route: 048
  33. HERBALS\TURMERIC [Suspect]
     Active Substance: HERBALS\TURMERIC
     Indication: Product used for unknown indication
     Dosage: PATIENT TAKING DIFFERENTLY DAILY
     Route: 065
  34. VITAMIN D3 [Suspect]
     Active Substance: CHOLECALCIFEROL
     Indication: Product used for unknown indication
     Dosage: 3 TABLET DAILY (PATIENT TAKING DIFFERENTLY : TAKE 100 UNITS BY MOUTH 3 TIMES A DAY)
     Route: 048
  35. ESTRADIOL [Suspect]
     Active Substance: ESTRADIOL
     Indication: Product used for unknown indication
     Dosage: INSERT 2 G INTO THE VAGINA AT BEDTIME AS NEEDED (MON-WED-FRI NIGHTS). DO NOT FOLLOW VAGINAL INSTRUCT
     Route: 065

REACTIONS (1)
  - Product administration error [Unknown]
